FAERS Safety Report 7486724-0 (Version None)
Quarter: 2011Q2

REPORT INFORMATION
  Report Type: 
  Country: None (occurrence: None)
  Receive Date: 20110517
  Receipt Date: 20110506
  Transmission Date: 20111010
  Serious: Yes (Hospitalization)
  Sender: FDA-Public Use
  Company Number: DE-PFIZER INC-2011097412

PATIENT
  Age: 50 Year
  Sex: Female
  Weight: 92.971 kg

DRUGS (9)
  1. CARBAMAZEPINE [Suspect]
     Indication: RESTLESS LEGS SYNDROME
     Dosage: 200 MG, 1X/DAY
     Route: 048
     Dates: start: 20101201, end: 20110228
  2. TRAMADOL HYDROCHLORIDE [Suspect]
     Indication: BACK PAIN
     Dosage: 100 MG, 1X/DAY
     Route: 048
     Dates: start: 20060101, end: 20110304
  3. DYDROGESTERONE TAB [Suspect]
     Indication: MENOPAUSE
     Dosage: 14 DAYS ESTRADIOL 1 MG/14 DAYS ESTRADIOL 1 MG, DYDROGESTEREN 10MG
     Route: 048
     Dates: start: 19990101, end: 20110304
  4. CARBAMAZEPINE [Suspect]
     Dosage: UNK
  5. DYDROGESTERONE TAB [Suspect]
     Indication: MENOPAUSE
     Dosage: UNK
     Dates: start: 19990101
  6. METOPROLOL SUCCINATE [Concomitant]
     Dosage: 95 MG, 1X/DAY
  7. IBUPROFEN [Suspect]
     Indication: HEADACHE
     Dosage: 800 MG TWICE PER WEEK, AS NEEDED
     Route: 048
     Dates: start: 20010101, end: 20110304
  8. METOPROLOL SUCCINATE [Concomitant]
     Indication: HYPERTENSION
     Dosage: 95 MG, 1X/DAY
     Route: 048
     Dates: start: 20010101
  9. LISINOPRIL [Suspect]
     Indication: HYPERTENSION
     Dosage: 5 MG, 1X/DAY
     Route: 048
     Dates: start: 20060101, end: 20110304

REACTIONS (1)
  - LIVER DISORDER [None]
